FAERS Safety Report 4277459-6 (Version None)
Quarter: 2004Q1

REPORT INFORMATION
  Report Type: 
  Country: None (occurrence: None)
  Receive Date: 20040122
  Receipt Date: 20031120
  Transmission Date: 20041129
  Serious: Yes (Death, Hospitalization)
  Sender: FDA-Public Use
  Company Number: US-ROCHE-352394

PATIENT
  Age: 50 Year
  Sex: Male

DRUGS (19)
  1. DACLIZUMAB [Suspect]
     Route: 065
  2. MYCOPHENOLATE MOFETIL [Suspect]
     Route: 065
  3. TACROLIMUS [Suspect]
     Route: 065
  4. PREDNISONE [Suspect]
     Route: 065
  5. CYTOVENE [Concomitant]
  6. BACTRIM [Concomitant]
     Route: 048
  7. MYCELEX TROCHES [Concomitant]
  8. DIGOXIN [Concomitant]
  9. COLACE [Concomitant]
  10. METOPROLOL [Concomitant]
  11. PRILOSEC [Concomitant]
  12. MAGNESIUM OXIDE [Concomitant]
  13. LASIX [Concomitant]
  14. NORVASC [Concomitant]
  15. NEUTRA-PHOS [Concomitant]
     Dosage: DOSE FORM PROVIDED AS PACKET.
  16. NPH INSULIN [Concomitant]
     Route: 058
  17. ATROVENT [Concomitant]
  18. NYSTATIN [Concomitant]
     Dosage: REGIMEN REPORTED AS 1 APPLICATION AS NEEDED.
     Route: 061
  19. ALBUTEROL [Concomitant]

REACTIONS (26)
  - BRADYCARDIA [None]
  - BREAST TENDERNESS [None]
  - BRONCHOPLEURAL FISTULA [None]
  - CELLULITIS [None]
  - CLOSTRIDIUM COLITIS [None]
  - COMPLICATIONS OF TRANSPLANT SURGERY [None]
  - CYTOMEGALOVIRUS INFECTION [None]
  - DEEP VEIN THROMBOSIS [None]
  - ERYTHEMA [None]
  - HAEMODIALYSIS [None]
  - INFECTION [None]
  - KIDNEY TRANSPLANT REJECTION [None]
  - MENTAL STATUS CHANGES [None]
  - NEUTROPENIA [None]
  - PLEURAL EFFUSION [None]
  - PNEUMONIA [None]
  - PSEUDOMONAS INFECTION [None]
  - PYREXIA [None]
  - RASH [None]
  - RENAL TUBULAR NECROSIS [None]
  - RESPIRATORY DISTRESS [None]
  - RESPIRATORY FAILURE [None]
  - SUPRAVENTRICULAR TACHYCARDIA [None]
  - VIRAL INFECTION [None]
  - WOUND DEHISCENCE [None]
  - WOUND INFECTION [None]
